FAERS Safety Report 6190950-0 (Version None)
Quarter: 2009Q2

REPORT INFORMATION
  Report Type: 
  Country: None (occurrence: None)
  Receive Date: 20090513
  Receipt Date: 20090429
  Transmission Date: 20091009
  Serious: Yes (Life-Threatening)
  Sender: FDA-Public Use
  Company Number: 8044728

PATIENT
  Age: 67 Year
  Sex: Female
  Weight: 64 kg

DRUGS (7)
  1. KEPPRA [Suspect]
     Indication: STATUS EPILEPTICUS
     Dosage: 1.5 G ONCE IV
     Route: 042
     Dates: start: 20090323, end: 20090323
  2. KEPPRA [Suspect]
     Indication: STATUS EPILEPTICUS
     Dosage: 750 MG 2/D IV
     Route: 042
     Dates: start: 20090324, end: 20090325
  3. URBASON /00049601/ [Concomitant]
  4. BELOC ZOK [Concomitant]
  5. ASPIRIN [Concomitant]
  6. OMEPRAZOLE [Concomitant]
  7. HEPARIN [Concomitant]

REACTIONS (9)
  - CARDIAC FAILURE [None]
  - COMA [None]
  - DEPRESSED LEVEL OF CONSCIOUSNESS [None]
  - DRUG HYPERSENSITIVITY [None]
  - HYPOTHERMIA [None]
  - OEDEMA PERIPHERAL [None]
  - PULMONARY OEDEMA [None]
  - RESPIRATORY ARREST [None]
  - RESPIRATORY FAILURE [None]
